FAERS Safety Report 6743338-5 (Version None)
Quarter: 2010Q2

REPORT INFORMATION
  Report Type: 
  Country: None (occurrence: None)
  Receive Date: 20100527
  Receipt Date: 20100513
  Transmission Date: 20101027
  Serious: Yes (Hospitalization)
  Sender: FDA-Public Use
  Company Number: BR-ELI_LILLY_AND_COMPANY-BR201005003497

PATIENT
  Sex: Female
  Weight: 41 kg

DRUGS (5)
  1. FORTEO [Suspect]
     Indication: OSTEOPOROSIS
     Dosage: UNK, DAILY (1/D)
     Route: 058
     Dates: start: 20090301, end: 20100101
  2. FORTEO [Suspect]
     Dosage: UNK, UNKNOWN
     Route: 065
     Dates: start: 20100101
  3. LEVODOPA [Concomitant]
     Indication: PARKINSON'S DISEASE
     Dosage: 250 MG, DAILY (1/D)
     Route: 065
  4. CALTRATE /00108001/ [Concomitant]
     Dosage: UNK, DAILY (1/D)
     Route: 065
  5. VITAMIN TAB [Concomitant]
     Dosage: UNK, DAILY (1/D)
     Route: 065

REACTIONS (2)
  - ISCHAEMIA [None]
  - SENSORY LEVEL ABNORMAL [None]
